FAERS Safety Report 9135849 (Version 1)
Quarter: 2013Q1

REPORT INFORMATION
  Report Type: Spontaneous
  Country: US (occurrence: US)
  Receive Date: 20130219
  Receipt Date: 20130219
  Transmission Date: 20140127
  Serious: No
  Sender: FDA-Public Use
  Company Number: US-BRISTOL-MYERS SQUIBB COMPANY-17115643

PATIENT
  Age: 57 Year
  Sex: Male
  Weight: 93.42 kg

DRUGS (7)
  1. ABATACEPT SUBQ INJECTION 125MG/ML [Suspect]
     Dosage: 1 DF- 125MG/1 ML,ORENCIA 125MG/1 ML PFS (4 PACKS)
     Route: 058
  2. ARAVA [Concomitant]
  3. PREDNISONE [Concomitant]
     Dosage: TABS.
  4. ATENOLOL TABS [Concomitant]
  5. LISINOPRIL [Concomitant]
     Dosage: TABS.
  6. METFORMIN [Concomitant]
     Dosage: TABS.
  7. NAPROXEN [Concomitant]
     Dosage: EC TABS.

REACTIONS (1)
  - Oropharyngeal pain [Unknown]
